FAERS Safety Report 11254612 (Version 1)
Quarter: 2015Q3

REPORT INFORMATION
  Report Type: Spontaneous
  Country: US (occurrence: US)
  Receive Date: 20150709
  Receipt Date: 20150709
  Transmission Date: 20151125
  Serious: No
  Sender: FDA-Public Use
  Company Number: PHEH2015US009421

PATIENT
  Age: 65 Year
  Sex: Female

DRUGS (1)
  1. VIVELLE DOT [Suspect]
     Active Substance: ESTRADIOL
     Indication: PRODUCT USED FOR UNKNOWN INDICATION
     Dosage: 0.375 OT, UNK
     Route: 062
     Dates: start: 2009

REACTIONS (2)
  - Application site inflammation [Unknown]
  - Application site rash [Unknown]
